FAERS Safety Report 13398040 (Version 1)
Quarter: 2017Q2

REPORT INFORMATION
  Report Type: Spontaneous
  Country: US (occurrence: US)
  Receive Date: 20170403
  Receipt Date: 20170403
  Transmission Date: 20170830
  Serious: Yes (Other)
  Sender: FDA-Public Use
  Company Number: US-NOVOPROD-538246

PATIENT
  Age: 72 Year
  Sex: Female

DRUGS (2)
  1. LEVEMIR [Suspect]
     Active Substance: INSULIN DETEMIR
     Indication: DIABETES MELLITUS
     Dosage: 76 U, QD IN PM
     Route: 058
  2. NOVOLOG [Suspect]
     Active Substance: INSULIN ASPART
     Indication: DIABETES MELLITUS
     Dosage: 22 U, TID BEFORE MEALS
     Route: 058

REACTIONS (4)
  - Blood glucose increased [Unknown]
  - Macular degeneration [Unknown]
  - Diabetes mellitus inadequate control [Unknown]
  - Glaucoma [Unknown]
